FAERS Safety Report 9788425 (Version 2)
Quarter: 2014Q2

REPORT INFORMATION
  Report Type: Report from Study
  Country: US (occurrence: US)
  Receive Date: 20131230
  Receipt Date: 20140411
  Transmission Date: 20141212
  Serious: Yes (Hospitalization, Other)
  Sender: FDA-Public Use
  Company Number: US-ABBVIE-13P-163-1181495-00

PATIENT
  Age: 49 Year
  Sex: Female
  Weight: 54.48 kg

DRUGS (10)
  1. HUMIRA [Suspect]
     Indication: CROHN^S DISEASE
  2. HUMIRA [Suspect]
  3. HUMIRA [Suspect]
     Dates: end: 201309
  4. HUMIRA [Suspect]
     Dates: start: 20131217
  5. LORTAB [Concomitant]
     Indication: PAIN
  6. METHOCARBAMOL [Concomitant]
     Indication: IRRITABLE BOWEL SYNDROME
  7. COMPAZINE [Concomitant]
     Indication: NAUSEA
     Dates: start: 2007
  8. GABAPENTIN [Concomitant]
     Indication: FIBROMYALGIA
  9. CLONIDINE [Concomitant]
     Indication: HYPERTENSION
  10. CLONIDINE [Concomitant]
     Indication: NIGHT SWEATS

REACTIONS (18)
  - Dysarthria [Recovered/Resolved]
  - Fall [Recovered/Resolved]
  - Abnormal behaviour [Recovered/Resolved]
  - Pyrexia [Recovered/Resolved]
  - Pneumonia [Recovered/Resolved]
  - Dyspnoea [Recovered/Resolved]
  - Pyrexia [Unknown]
  - Pneumonia escherichia [Unknown]
  - Aspiration [Recovered/Resolved]
  - Haemoglobin decreased [Recovered/Resolved]
  - Haemorrhage [Recovered/Resolved]
  - Blood glucose decreased [Recovered/Resolved]
  - Abdominal pain [Recovered/Resolved]
  - Rectal haemorrhage [Recovered/Resolved]
  - Dizziness [Recovered/Resolved]
  - Dizziness [Recovered/Resolved]
  - Constipation [Unknown]
  - Adhesion [Unknown]
